FAERS Safety Report 15855631 (Version 3)
Quarter: 2019Q3

REPORT INFORMATION
  Report Type: Report from Study
  Country: US (occurrence: US)
  Receive Date: 20190122
  Receipt Date: 20190702
  Transmission Date: 20191004
  Serious: Yes (Other)
  Sender: FDA-Public Use
  Company Number: PHHY2019US013565

PATIENT
  Age: 61 Year
  Sex: Male

DRUGS (1)
  1. COSENTYX [Suspect]
     Active Substance: SECUKINUMAB
     Indication: PSORIATIC ARTHROPATHY
     Dosage: 300 MG, QMO (Q4W)
     Route: 058
     Dates: start: 20171217, end: 20190624

REACTIONS (6)
  - Drug ineffective [Unknown]
  - Fall [Unknown]
  - Pain [Unknown]
  - Gait inability [Unknown]
  - Psoriatic arthropathy [Unknown]
  - Joint injury [Unknown]
